FAERS Safety Report 20692462 (Version 3)
Quarter: 2022Q3

REPORT INFORMATION
  Report Type: Report from Study
  Country: CO (occurrence: CO)
  Receive Date: 20220409
  Receipt Date: 20220829
  Transmission Date: 20221026
  Serious: Yes (Hospitalization)
  Sender: FDA-Public Use
  Company Number: None

PATIENT
  Age: 45 Year
  Sex: Female
  Weight: 73 kg

DRUGS (2)
  1. ORENCIA [Suspect]
     Active Substance: ABATACEPT
     Indication: Rheumatoid arthritis
     Dosage: 125 MG/ML, QWK
     Route: 058
     Dates: start: 20220120
  2. ORENCIA [Suspect]
     Active Substance: ABATACEPT

REACTIONS (9)
  - Pelvic pain [Recovering/Resolving]
  - Limb injury [Recovered/Resolved]
  - Fall [Recovered/Resolved]
  - Rash [Recovering/Resolving]
  - Pain [Recovering/Resolving]
  - Swelling [Recovering/Resolving]
  - Inflammation [Unknown]
  - Chest pain [Recovering/Resolving]
  - Abdominal pain [Recovering/Resolving]

NARRATIVE: CASE EVENT DATE: 20220120
